FAERS Safety Report 5345589-3 (Version None)
Quarter: 2007Q2

REPORT INFORMATION
  Report Type: 
  Country: None (occurrence: None)
  Receive Date: 20070605
  Receipt Date: 20061004
  Transmission Date: 20071010
  Serious: No
  Sender: FDA-Public Use
  Company Number: US-ASTRAZENECA-2006UW19230

PATIENT
  Sex: Male

DRUGS (5)
  1. PRILOSEC [Suspect]
     Indication: GASTROOESOPHAGEAL REFLUX DISEASE
     Route: 048
  2. SEROQUEL [Concomitant]
  3. ZANTAC [Concomitant]
  4. PEPCID [Concomitant]
  5. KLONOPIN [Concomitant]

REACTIONS (1)
  - HYPOAESTHESIA [None]
